FAERS Safety Report 8221757-8 (Version None)
Quarter: 2012Q1

REPORT INFORMATION
  Report Type: 
  Country: None (occurrence: None)
  Receive Date: 20120320
  Receipt Date: 20120320
  Transmission Date: 20120608
  Serious: Yes (Life-Threatening)
  Sender: FDA-Public Use
  Company Number: None

PATIENT
  Age: 28 Year
  Sex: Female
  Weight: 48.987 kg

DRUGS (1)
  1. HUMIRA [Suspect]
     Indication: COLITIS ULCERATIVE
     Dosage: 7 INJECTIONS
     Dates: start: 20110723, end: 20110823

REACTIONS (6)
  - PRODUCT QUALITY ISSUE [None]
  - RENAL DISORDER [None]
  - CARDIAC FAILURE CONGESTIVE [None]
  - BRAIN INJURY [None]
  - PYREXIA [None]
  - LUPUS-LIKE SYNDROME [None]
